FAERS Safety Report 4621492-9 (Version None)
Quarter: 2005Q1

REPORT INFORMATION
  Report Type: 
  Country: None (occurrence: None)
  Receive Date: 20050328
  Receipt Date: 20040415
  Transmission Date: 20050727
  Serious: Yes (Hospitalization)
  Sender: FDA-Public Use
  Company Number: 9628

PATIENT
  Age: 51 Year
  Sex: Female

DRUGS (4)
  1. METHOTREXATE [Suspect]
     Indication: RHEUMATOID ARTHRITIS
     Dosage: 20 MG WEEKLY/40 MG WEEKLY SC
     Route: 058
     Dates: start: 20040317, end: 20040330
  2. METHOTREXATE [Suspect]
     Indication: RHEUMATOID ARTHRITIS
     Dosage: 20 MG WEEKLY/40 MG WEEKLY SC
     Route: 058
     Dates: start: 20040331
  3. SULFASALAZINE [Concomitant]
  4. CHLOROQUINE PHOSPHATE [Concomitant]

REACTIONS (4)
  - ACCIDENTAL OVERDOSE [None]
  - LEUKOPENIA [None]
  - MEDICATION ERROR [None]
  - NEUTROPENIA [None]
